FAERS Safety Report 10278584 (Version 1)
Quarter: 2014Q3

REPORT INFORMATION
  Report Type: Spontaneous
  Country: IT (occurrence: IT)
  Receive Date: 20140704
  Receipt Date: 20140704
  Transmission Date: 20150326
  Serious: Yes (Life-Threatening, Hospitalization)
  Sender: FDA-Public Use
  Company Number: IT-BRISTOL-MYERS SQUIBB COMPANY-21135728

PATIENT
  Age: 66 Year
  Sex: Female

DRUGS (7)
  1. JANUMET [Concomitant]
     Active Substance: METFORMIN HYDROCHLORIDE\SITAGLIPTIN PHOSPHATE
  2. LANSOPRAZOLE. [Concomitant]
     Active Substance: LANSOPRAZOLE
  3. SIMVASTATIN. [Concomitant]
     Active Substance: SIMVASTATIN
  4. METFORMIN HCL [Suspect]
     Active Substance: METFORMIN HYDROCHLORIDE
  5. QUINAPRIL [Concomitant]
     Active Substance: QUINAPRIL\QUINAPRIL HYDROCHLORIDE
     Indication: HYPERTENSION
  6. CARDIOASPIRIN [Concomitant]
     Active Substance: ASPIRIN
     Indication: MYOCARDIAL ISCHAEMIA
     Route: 048
  7. VYTORIN [Concomitant]
     Active Substance: EZETIMIBE\SIMVASTATIN

REACTIONS (4)
  - Metabolic acidosis [Recovered/Resolved]
  - Vomiting [Recovered/Resolved]
  - Pyrexia [Recovered/Resolved]
  - Diarrhoea [Recovered/Resolved]

NARRATIVE: CASE EVENT DATE: 20140221
